FAERS Safety Report 5268342-8 (Version None)
Quarter: 2007Q1

REPORT INFORMATION
  Report Type: 
  Country: None (occurrence: None)
  Receive Date: 20070315
  Receipt Date: 20070315
  Transmission Date: 20070707
  Serious: Yes (Other)
  Sender: FDA-Public Use
  Company Number: None

PATIENT
  Age: 56 Year
  Sex: Male

DRUGS (1)
  1. METHADONE HCL [Suspect]
     Indication: DRUG DEPENDENCE
     Dosage: 110 MG DAILY PO
     Route: 048
     Dates: start: 20050707, end: 20060930

REACTIONS (5)
  - CERVICAL VERTEBRAL FRACTURE [None]
  - FALL [None]
  - INJURY [None]
  - SYNCOPE [None]
  - TORSADE DE POINTES [None]
